FAERS Safety Report 19568087 (Version 1)
Quarter: 2021Q3

REPORT INFORMATION
  Report Type: Spontaneous
  Country: IT (occurrence: IT)
  Receive Date: 20210716
  Receipt Date: 20210716
  Transmission Date: 20211014
  Serious: Yes (Other)
  Sender: FDA-Public Use
  Company Number: IT-JNJFOC-20210718335

PATIENT
  Age: 31 Year
  Sex: Male

DRUGS (1)
  1. STELARA [Suspect]
     Active Substance: USTEKINUMAB
     Indication: PSORIASIS
     Dosage: WEEK 0, 4 WEEKS, 12 WEEKS THEREAFTER
     Route: 058

REACTIONS (2)
  - Anogenital warts [Not Recovered/Not Resolved]
  - Drug ineffective [Unknown]
